FAERS Safety Report 26080890 (Version 1)
Quarter: 2025Q4

REPORT INFORMATION
  Report Type: Spontaneous
  Country: US (occurrence: US)
  Receive Date: 20251124
  Receipt Date: 20251124
  Transmission Date: 20260118
  Serious: No
  Sender: RECKITT BENCKISER
  Company Number: US-PROD-AS2-212756134-20-25-USA-RB-0008634

PATIENT
  Age: 35 Year
  Sex: Male
  Weight: 72.575 kg

DRUGS (2)
  1. DELSYM [Suspect]
     Active Substance: DEXTROMETHORPHAN
     Indication: Nasopharyngitis
     Dosage: UNKNOWN
     Route: 048
     Dates: start: 20250521
  2. AMLODIPINE [Concomitant]
     Active Substance: AMLODIPINE BESYLATE
     Indication: Product used for unknown indication
     Dosage: UNKNOWN
     Route: 065

REACTIONS (2)
  - Overdose [Recovered/Resolved]
  - Exposure via ingestion [Recovered/Resolved]

NARRATIVE: CASE EVENT DATE: 20250521
